FAERS Safety Report 18705547 (Version 6)
Quarter: 2022Q3

REPORT INFORMATION
  Report Type: Report from Study
  Country: CN (occurrence: CN)
  Receive Date: 20210106
  Receipt Date: 20220808
  Transmission Date: 20221027
  Serious: Yes (Other)
  Sender: FDA-Public Use
  Company Number: NVSC2020CN346715

PATIENT
  Age: 62 Year
  Sex: Male

DRUGS (6)
  1. PAZOPANIB [Suspect]
     Active Substance: PAZOPANIB
     Indication: Metastatic renal cell carcinoma
     Dosage: 800 MG
     Route: 048
     Dates: start: 20200917, end: 20201028
  2. PAZOPANIB [Suspect]
     Active Substance: PAZOPANIB
     Dosage: 800 MG
     Route: 048
     Dates: start: 20201110, end: 20201201
  3. PAZOPANIB [Suspect]
     Active Substance: PAZOPANIB
     Dosage: 600 MG
     Route: 048
     Dates: start: 20201223, end: 20210604
  4. PAZOPANIB [Suspect]
     Active Substance: PAZOPANIB
     Dosage: 800 MG
     Route: 048
     Dates: start: 20210605, end: 20210923
  5. TRIZIN [Concomitant]
     Indication: Product used for unknown indication
     Dosage: 1 DF
     Route: 048
     Dates: start: 2010
  6. RUTINUM [Concomitant]
     Indication: Product used for unknown indication
     Dosage: 1 DF
     Route: 048
     Dates: start: 2010

REACTIONS (16)
  - Myelosuppression [Not Recovered/Not Resolved]
  - Blood thyroid stimulating hormone increased [Not Recovered/Not Resolved]
  - Blood triglycerides increased [Not Recovered/Not Resolved]
  - Blood glucose increased [Not Recovered/Not Resolved]
  - Neutrophil count decreased [Recovered/Resolved]
  - Palmar-plantar erythrodysaesthesia syndrome [Recovered/Resolved]
  - Diarrhoea [Not Recovered/Not Resolved]
  - Asthenia [Not Recovered/Not Resolved]
  - Blood bilirubin increased [Not Recovered/Not Resolved]
  - Hepatic function abnormal [Recovered/Resolved]
  - Blood pressure increased [Recovered/Resolved]
  - Thyroid disorder [Not Recovered/Not Resolved]
  - Aspartate aminotransferase increased [Not Recovered/Not Resolved]
  - Gamma-glutamyltransferase increased [Not Recovered/Not Resolved]
  - Tri-iodothyronine decreased [Not Recovered/Not Resolved]
  - Thyroid hormones decreased [Not Recovered/Not Resolved]

NARRATIVE: CASE EVENT DATE: 20201006
